FAERS Safety Report 23668467 (Version 1)
Quarter: 2024Q1

REPORT INFORMATION
  Report Type: Spontaneous
  Country: US (occurrence: US)
  Receive Date: 20240325
  Receipt Date: 20240325
  Transmission Date: 20240409
  Serious: No
  Sender: FDA-Public Use
  Company Number: US-VISTAPHARM-2023-US-008544

PATIENT
  Age: 50 Year
  Sex: Female
  Weight: 92.53 kg

DRUGS (6)
  1. HYDROCODONE BITARTRATE AND ACETAMINOPHEN [Suspect]
     Active Substance: ACETAMINOPHEN\HYDROCODONE BITARTRATE
     Indication: Product used for unknown indication
     Dosage: 120ML PER DAY (FREQUENCY UNSPECIFIED)
     Dates: start: 2010, end: 20230401
  2. OPTISOURCE VITAMIN D [Concomitant]
  3. SUCRALFATE [Concomitant]
     Active Substance: SUCRALFATE
  4. FAMOTIDINE [Concomitant]
     Active Substance: FAMOTIDINE
  5. UNSPECIFIED PROBIOTICS [Concomitant]
  6. TIZANIDINE [Concomitant]
     Active Substance: TIZANIDINE

REACTIONS (2)
  - Headache [Recovering/Resolving]
  - Hypersomnia [Recovered/Resolved]

NARRATIVE: CASE EVENT DATE: 20230331
